FAERS Safety Report 20067297 (Version 1)
Quarter: 2021Q4

REPORT INFORMATION
  Report Type: Report from Study
  Country: US (occurrence: US)
  Receive Date: 20211115
  Receipt Date: 20211115
  Transmission Date: 20220303
  Serious: Yes (Disabling)
  Sender: FDA-Public Use
  Company Number: US-ABBVIE-21K-163-4158430-00

PATIENT
  Sex: Female

DRUGS (1)
  1. RINVOQ [Suspect]
     Active Substance: UPADACITINIB
     Indication: Rheumatoid arthritis
     Route: 048
     Dates: start: 202108

REACTIONS (7)
  - Blindness [Unknown]
  - Nausea [Not Recovered/Not Resolved]
  - Somnolence [Unknown]
  - Fatigue [Unknown]
  - Walking aid user [Unknown]
  - Pain in extremity [Unknown]
  - Sciatica [Unknown]

NARRATIVE: CASE EVENT DATE: 20210101
